FAERS Safety Report 14458478 (Version 2)
Quarter: 2023Q4

REPORT INFORMATION
  Report Type: Spontaneous
  Country: US (occurrence: US)
  Receive Date: 20180130
  Receipt Date: 20231128
  Transmission Date: 20240110
  Serious: No
  Sender: FDA-Public Use
  Company Number: US-PFIZER INC-2018032242

PATIENT
  Age: 53 Year
  Sex: Male
  Weight: 107.5 kg

DRUGS (2)
  1. EUCRISA [Suspect]
     Active Substance: CRISABOROLE
     Indication: Rebound effect
     Dosage: IN THE EVENING ON WEEKDAYS (TWICE DAILY ON THE WEEKENDS)
  2. EUCRISA [Suspect]
     Active Substance: CRISABOROLE
     Indication: Dermatitis atopic
     Dosage: UNK, 2X/DAY (APPLY THIN FILM TO THE FACE)
     Route: 061
     Dates: start: 20180112

REACTIONS (5)
  - Off label use [Unknown]
  - Product quality issue [Unknown]
  - Poor quality product administered [Unknown]
  - Application site pain [Recovered/Resolved]
  - Product physical consistency issue [Unknown]

NARRATIVE: CASE EVENT DATE: 20180101
